FAERS Safety Report 8150489 (Version 3)
Quarter: 2012Q4

REPORT INFORMATION
  Report Type: 
  Country: US (occurrence: US)
  Receive Date: 20110922
  Receipt Date: 20121112
  Transmission Date: 20130627
  Serious: No
  Sender: FDA-Public Use
  Company Number: US-ASTRAZENECA-2010SE48417

PATIENT
  Age: 96 Year
  Sex: Female
  Weight: 61.2 kg

DRUGS (4)
  1. SEROQUEL [Suspect]
     Indication: DEMENTIA
     Dosage: 2 OR 3 TABLETS DAILY
     Route: 048
     Dates: start: 2009
  2. ARICEPT [Concomitant]
  3. EFFEXOR [Concomitant]
  4. WATER PILL [Concomitant]

REACTIONS (5)
  - Dementia [Unknown]
  - Gait disturbance [Unknown]
  - Ankle deformity [Unknown]
  - Vitamin B12 deficiency [Unknown]
  - Drug ineffective [Unknown]
